FAERS Safety Report 16231685 (Version 1)
Quarter: 2019Q2

REPORT INFORMATION
  Report Type: Other
  Country: GB (occurrence: GB)
  Receive Date: 20190424
  Receipt Date: 20190424
  Transmission Date: 20190711
  Serious: Yes (Hospitalization, Other)
  Sender: FDA-Public Use
  Company Number: GB-ASTELLAS-2019US016953

PATIENT
  Age: 64 Year
  Sex: Male

DRUGS (1)
  1. PROGRAF [Suspect]
     Active Substance: TACROLIMUS\TACROLIMUS ANHYDROUS
     Indication: LIVER TRANSPLANT
     Dosage: UNK, UNKNOWN FREQ.
     Route: 048
     Dates: start: 20181103

REACTIONS (2)
  - Migraine [Recovering/Resolving]
  - Hypophagia [Unknown]

NARRATIVE: CASE EVENT DATE: 20181103
